FAERS Safety Report 9780515 (Version 2)
Quarter: 2014Q1

REPORT INFORMATION
  Report Type: Report from Study
  Country: TR (occurrence: TR)
  Receive Date: 20131224
  Receipt Date: 20140128
  Transmission Date: 20141002
  Serious: Yes (Hospitalization)
  Sender: FDA-Public Use
  Company Number: TR-ABBVIE-13P-161-1182060-00

PATIENT
  Age: 58 Year
  Sex: Female
  Weight: 85 kg

DRUGS (1)
  1. HUMIRA [Suspect]
     Indication: RHEUMATOID ARTHRITIS
     Route: 058
     Dates: start: 20130509, end: 20131217

REACTIONS (4)
  - Arteriosclerosis [Recovered/Resolved]
  - Myocardial infarction [Recovered/Resolved]
  - Stent placement [Recovered/Resolved]
  - Hypercholesterolaemia [Unknown]
